FAERS Safety Report 10252147 (Version 1)
Quarter: 2014Q2

REPORT INFORMATION
  Report Type: Spontaneous
  Country: DO (occurrence: DO)
  Receive Date: 20140623
  Receipt Date: 20140623
  Transmission Date: 20141212
  Serious: Yes (Other)
  Sender: FDA-Public Use
  Company Number: DO-BAYER-2014-092101

PATIENT
  Age: 38 Year
  Sex: Male

DRUGS (1)
  1. LEVITRA [Suspect]
     Dosage: UNK,HALF TABLET OF 10 MG
     Route: 048

REACTIONS (2)
  - Tachycardia [Recovered/Resolved]
  - Vision blurred [Recovered/Resolved]
